FAERS Safety Report 6583221-1 (Version None)
Quarter: 2010Q1

REPORT INFORMATION
  Report Type: 
  Country: None (occurrence: None)
  Receive Date: 20100216
  Receipt Date: 20100204
  Transmission Date: 20100710
  Serious: Yes (Hospitalization)
  Sender: FDA-Public Use
  Company Number: SE-ROCHE-683739

PATIENT
  Age: 63 Year
  Sex: Male

DRUGS (9)
  1. ACTEMRA [Suspect]
     Indication: RHEUMATOID ARTHRITIS
     Dosage: FREQUENCY REPORTED AS C, FORM REPORTED AS INFUSION
     Route: 042
     Dates: start: 20091203
  2. ACTEMRA [Suspect]
     Dosage: FREQUENCY REPORTED AS C, FORM REPORTED AS INFUSION
     Route: 042
     Dates: start: 20100107, end: 20100128
  3. TRAMADOL [Concomitant]
  4. CALCICHEW [Concomitant]
  5. FOLACIN [Concomitant]
  6. ALVEDON [Concomitant]
  7. METHOTREXATE [Concomitant]
     Dosage: METHOTREXATE WYTH TABLET 2.5 MG
  8. PREDNISONE [Concomitant]
     Dosage: DRUG NAME REPORTED AS PREDNISOLON PFIZER TABLET 5 MG
  9. NOVOMIX [Concomitant]
     Dosage: DRUG NAME REPORTED AS NOVOMIX 30

REACTIONS (1)
  - MYALGIA [None]
